FAERS Safety Report 5735487-5 (Version None)
Quarter: 2008Q2

REPORT INFORMATION
  Report Type: 
  Country: None (occurrence: None)
  Receive Date: 20080512
  Receipt Date: 20080501
  Transmission Date: 20081010
  Serious: Yes (Life-Threatening, Hospitalization, Other)
  Sender: FDA-Public Use
  Company Number: US-PFIZER INC-2008014725

PATIENT
  Sex: Female
  Weight: 68.5 kg

DRUGS (15)
  1. LYRICA [Suspect]
     Indication: RHEUMATOID ARTHRITIS
  2. LYRICA [Suspect]
     Indication: FIBROMYALGIA
  3. LYRICA [Suspect]
     Indication: CORONARY ARTERY DISEASE
  4. LYRICA [Suspect]
     Indication: PAIN
  5. ZOLOFT [Suspect]
  6. XANAX [Suspect]
  7. OXYMORPHONE HCL [Suspect]
  8. KLONOPIN [Suspect]
  9. WELLBUTRIN [Concomitant]
  10. PAMELOR [Concomitant]
  11. CELEBREX [Concomitant]
  12. ACETYLSALICYLIC ACID SRT [Concomitant]
  13. METHOTREXATE [Concomitant]
  14. DRUG, UNSPECIFIED [Concomitant]
  15. ALL OTHER THERAPEUTIC PRODUCTS [Concomitant]

REACTIONS (9)
  - AGITATION [None]
  - FEELING ABNORMAL [None]
  - GASTROENTERITIS VIRAL [None]
  - MYOCARDIAL INFARCTION [None]
  - NAUSEA [None]
  - PAIN [None]
  - SEROTONIN SYNDROME [None]
  - VOMITING [None]
  - WITHDRAWAL SYNDROME [None]
